FAERS Safety Report 19187549 (Version 2)
Quarter: 2021Q2

REPORT INFORMATION
  Report Type: Report from Study
  Country: None (occurrence: US)
  Receive Date: 20210427
  Receipt Date: 20210520
  Transmission Date: 20210717
  Serious: Yes (Hospitalization)
  Sender: FDA-Public Use
  Company Number: US-ABBVIE-21K-163-3818539-00

PATIENT
  Sex: Female

DRUGS (2)
  1. HUMIRA [Suspect]
     Active Substance: ADALIMUMAB
     Dosage: CITRATE FREE
     Route: 058
     Dates: start: 2021
  2. HUMIRA [Suspect]
     Active Substance: ADALIMUMAB
     Indication: UVEITIS
     Dosage: CITRATE FREE
     Route: 058

REACTIONS (19)
  - Muscle spasms [Unknown]
  - Balance disorder [Recovering/Resolving]
  - Fatigue [Unknown]
  - Neuropathy peripheral [Recovering/Resolving]
  - Pain in extremity [Not Recovered/Not Resolved]
  - Uveitis [Unknown]
  - Pruritus [Recovering/Resolving]
  - Burning sensation [Unknown]
  - Drug ineffective [Not Recovered/Not Resolved]
  - Blood magnesium decreased [Recovering/Resolving]
  - Neuritis [Unknown]
  - Cardiac disorder [Recovering/Resolving]
  - Night sweats [Not Recovered/Not Resolved]
  - Arthralgia [Unknown]
  - Blood potassium decreased [Recovering/Resolving]
  - Paraesthesia [Unknown]
  - Loss of consciousness [Unknown]
  - Pollakiuria [Recovering/Resolving]
  - Dry skin [Unknown]

NARRATIVE: CASE EVENT DATE: 2021
